FAERS Safety Report 10461008 (Version 2)
Quarter: 2014Q4

REPORT INFORMATION
  Report Type: Spontaneous
  Country: US (occurrence: None)
  Receive Date: 20140911
  Receipt Date: 20141008
  Transmission Date: 20150528
  Serious: Yes (Hospitalization)
  Sender: FDA-Public Use
  Company Number: GTI002515

PATIENT
  Age: 53 Year
  Sex: Male

DRUGS (22)
  1. PARACETAMOL [Concomitant]
     Active Substance: ACETAMINOPHEN
  2. TOPROL XL [Concomitant]
     Active Substance: METOPROLOL SUCCINATE
  3. SYMBICORT [Concomitant]
     Active Substance: BUDESONIDE\FORMOTEROL FUMARATE DIHYDRATE
  4. NAPROSYN G [Concomitant]
  5. METFORMIN [Concomitant]
     Active Substance: METFORMIN HYDROCHLORIDE
  6. DUONEB [Concomitant]
     Active Substance: ALBUTEROL SULFATE\IPRATROPIUM BROMIDE
  7. PROAIR HFA [Concomitant]
     Active Substance: ALBUTEROL SULFATE
  8. RHINOCORT [Concomitant]
     Active Substance: BUDESONIDE
  9. OXYCODONE [Concomitant]
     Active Substance: OXYCODONE
  10. ALLOPURINOL. [Concomitant]
     Active Substance: ALLOPURINOL
  11. FENTANYL. [Concomitant]
     Active Substance: FENTANYL
  12. CRESTOR [Concomitant]
     Active Substance: ROSUVASTATIN CALCIUM
  13. PROLASTIN-C [Suspect]
     Active Substance: .ALPHA.1-PROTEINASE INHIBITOR HUMAN
     Indication: ALPHA-1 ANTI-TRYPSIN DEFICIENCY
     Route: 042
     Dates: start: 2013, end: 20140525
  14. NAPROSYN [Suspect]
     Active Substance: NAPROXEN
  15. LORAZEPAM. [Concomitant]
     Active Substance: LORAZEPAM
  16. OMEPRAZOLE. [Concomitant]
     Active Substance: OMEPRAZOLE
  17. PERCOCET [Concomitant]
     Active Substance: ACETAMINOPHEN\OXYCODONE HYDROCHLORIDE
  18. ULTRACET [Concomitant]
     Active Substance: ACETAMINOPHEN\TRAMADOL HYDROCHLORIDE
  19. VICODIN [Concomitant]
     Active Substance: ACETAMINOPHEN\HYDROCODONE BITARTRATE
  20. ZOLOFT [Concomitant]
     Active Substance: SERTRALINE HYDROCHLORIDE
  21. CODEINE [Concomitant]
     Active Substance: CODEINE
  22. TRAMADOL [Concomitant]
     Active Substance: TRAMADOL

REACTIONS (14)
  - Renal tubular necrosis [None]
  - Glomerulonephritis [None]
  - Blood sodium decreased [None]
  - Blood calcium decreased [None]
  - Nodal rhythm [None]
  - Blood uric acid abnormal [None]
  - Blood glucose increased [None]
  - Hypoxia [None]
  - Cough [None]
  - Acute kidney injury [None]
  - Haemodialysis [None]
  - Nephrogenic anaemia [None]
  - Immune system disorder [None]
  - Tubulointerstitial nephritis [None]

NARRATIVE: CASE EVENT DATE: 20140523
